FAERS Safety Report 16157847 (Version 5)
Quarter: 2019Q4

REPORT INFORMATION
  Report Type: Spontaneous
  Country: NL (occurrence: NL)
  Receive Date: 20190404
  Receipt Date: 20191204
  Transmission Date: 20200122
  Serious: Yes (Hospitalization, Other)
  Sender: FDA-Public Use
  Company Number: NL-MYLANLABS-2019M1030872

PATIENT
  Age: 63 Year
  Sex: Male

DRUGS (20)
  1. CICLOSPORIN [Interacting]
     Active Substance: CYCLOSPORINE
     Dosage: 450 MILLIGRAM, QD (225 MG, BID)
     Dates: start: 201209, end: 2012
  2. CICLOSPORIN [Interacting]
     Active Substance: CYCLOSPORINE
     Dosage: 225 MG, BID
     Dates: start: 201209, end: 2012
  3. CLOPIDOGREL [Concomitant]
     Active Substance: CLOPIDOGREL BISULFATE
     Indication: PERCUTANEOUS CORONARY INTERVENTION
     Dosage: UNK
     Route: 065
     Dates: start: 201503
  4. ASPIRIN                            /00002701/ [Concomitant]
     Active Substance: ASPIRIN
     Indication: PERCUTANEOUS CORONARY INTERVENTION
     Dosage: UNK
     Dates: start: 201503
  5. CICLOSPORIN [Interacting]
     Active Substance: CYCLOSPORINE
     Dosage: GRADUALLY DECREASED BECAUSE OF GVHD
     Dates: start: 2012, end: 2012
  6. ACETYLSALICYLIC ACID [Concomitant]
     Active Substance: ASPIRIN
     Indication: PERCUTANEOUS CORONARY INTERVENTION
     Dosage: UNK
     Dates: start: 201503
  7. CICLOSPORIN [Interacting]
     Active Substance: CYCLOSPORINE
     Dosage: 75 MILLIGRAM, QD
     Dates: start: 201204, end: 2012
  8. CICLOSPORIN [Interacting]
     Active Substance: CYCLOSPORINE
     Dosage: 200 MILLIGRAM, QD (100 MG, BID)
     Route: 065
     Dates: start: 2016
  9. CICLOSPORIN [Interacting]
     Active Substance: CYCLOSPORINE
     Dosage: GRADUALLY DECREASED TO 25 MG 2X PER DAY
     Dates: start: 201209
  10. SIMVASTATIN. [Suspect]
     Active Substance: SIMVASTATIN
     Indication: CARDIOVASCULAR EVENT PROPHYLAXIS
     Dosage: 40 MILLIGRAM, QD
     Route: 048
     Dates: start: 201503, end: 201603
  11. VORICONAZOLE. [Interacting]
     Active Substance: VORICONAZOLE
     Indication: BRONCHOPULMONARY ASPERGILLOSIS
     Dosage: 200 MG BID
     Dates: start: 201602, end: 201603
  12. CICLOSPORIN [Interacting]
     Active Substance: CYCLOSPORINE
     Dosage: 150 MILLIGRAM, QD, 75 MG, BID
     Dates: start: 201305, end: 2016
  13. SIMVASTATIN. [Interacting]
     Active Substance: SIMVASTATIN
     Indication: PERCUTANEOUS CORONARY INTERVENTION
     Dosage: 40 MILLIGRAM, QD
     Route: 065
  14. VORICONAZOLE. [Interacting]
     Active Substance: VORICONAZOLE
     Dosage: 400 MILLIGRAM, QD, (200 MG, BID)
     Route: 065
  15. CICLOSPORIN [Interacting]
     Active Substance: CYCLOSPORINE
     Dosage: GRADUALLY DECREASED TO 75 MG 2X PER DAY
     Dates: start: 201209
  16. CICLOSPORIN [Interacting]
     Active Substance: CYCLOSPORINE
     Indication: CHRONIC GRAFT VERSUS HOST DISEASE
     Dosage: 75 MG BID
     Dates: start: 201305, end: 2016
  17. CICLOSPORIN [Interacting]
     Active Substance: CYCLOSPORINE
     Dosage: 25 MILLIGRAM, QD
     Dates: start: 201208, end: 201209
  18. CICLOSPORIN [Interacting]
     Active Substance: CYCLOSPORINE
     Dosage: UNK
     Dates: start: 201204, end: 2012
  19. CICLOSPORIN [Interacting]
     Active Substance: CYCLOSPORINE
     Dosage: 25 MILLIGRAM, QD
     Dates: start: 201209, end: 201209
  20. VORICONAZOLE. [Interacting]
     Active Substance: VORICONAZOLE
     Indication: BRONCHOPULMONARY ASPERGILLOSIS
     Dosage: 75 MG, BID
     Dates: start: 201602, end: 201603

REACTIONS (7)
  - Myalgia [Recovered/Resolved]
  - Product use in unapproved indication [Unknown]
  - Chromaturia [Unknown]
  - Rhabdomyolysis [Unknown]
  - Drug interaction [Unknown]
  - Gait disturbance [Recovered/Resolved]
  - Bronchopulmonary aspergillosis [Unknown]

NARRATIVE: CASE EVENT DATE: 2016
